FAERS Safety Report 13833485 (Version 1)
Quarter: 2017Q3

REPORT INFORMATION
  Report Type: Spontaneous
  Country: US (occurrence: US)
  Receive Date: 20170803
  Receipt Date: 20170803
  Transmission Date: 20171127
  Serious: Yes (Other)
  Sender: FDA-Public Use
  Company Number: US-ABBVIE-17K-163-2054496-00

PATIENT
  Age: 70 Year
  Sex: Female
  Weight: 72.57 kg

DRUGS (10)
  1. HUMIRA [Suspect]
     Active Substance: ADALIMUMAB
     Indication: ARTHRITIS
     Route: 058
     Dates: end: 2010
  2. LISINOPRIL HCTZ [Concomitant]
     Active Substance: HYDROCHLOROTHIAZIDE\LISINOPRIL
     Indication: BLOOD PRESSURE MEASUREMENT
     Dosage: 5/10-12.5 MG
     Route: 048
     Dates: start: 201611
  3. REMICADE [Suspect]
     Active Substance: INFLIXIMAB
     Indication: ARTHRITIS
     Route: 065
     Dates: end: 201103
  4. RITUXAN [Suspect]
     Active Substance: RITUXIMAB
     Indication: ARTHRITIS
     Route: 065
  5. ACTEMRA [Suspect]
     Active Substance: TOCILIZUMAB
     Indication: ARTHRITIS
     Route: 065
     Dates: end: 20120724
  6. SIMPONI [Concomitant]
     Active Substance: GOLIMUMAB
     Indication: ARTHRITIS
     Route: 065
     Dates: end: 201304
  7. HYDROXYZINE [Concomitant]
     Active Substance: HYDROXYZINE HYDROCHLORIDE
     Indication: LICHEN SCLEROSUS
     Route: 048
  8. XELJANZ [Suspect]
     Active Substance: TOFACITINIB CITRATE
     Indication: OSTEOARTHRITIS
     Route: 048
     Dates: start: 2014
  9. METHOTREXATE. [Suspect]
     Active Substance: METHOTREXATE
     Indication: OSTEOARTHRITIS
     Route: 065
  10. ORENCIA [Suspect]
     Active Substance: ABATACEPT
     Indication: ARTHRITIS
     Route: 065
     Dates: start: 201110, end: 201203

REACTIONS (16)
  - Joint range of motion decreased [Recovered/Resolved]
  - Lichen sclerosus [Not Recovered/Not Resolved]
  - Drug effect incomplete [Unknown]
  - Cough [Not Recovered/Not Resolved]
  - Discoloured vomit [Unknown]
  - Vomiting [Unknown]
  - Dyspnoea [Unknown]
  - Drug effect decreased [Unknown]
  - Tendonitis [Recovered/Resolved]
  - Osteoarthritis [Unknown]
  - Urticaria [Unknown]
  - Blood pressure increased [Unknown]
  - Oropharyngeal discomfort [Unknown]
  - Knee arthroplasty [Unknown]
  - Knee arthroplasty [Unknown]
  - Pollakiuria [Unknown]

NARRATIVE: CASE EVENT DATE: 2011
